FAERS Safety Report 23788554 (Version 4)
Quarter: 2024Q2

REPORT INFORMATION
  Report Type: Spontaneous
  Country: US (occurrence: US)
  Receive Date: 20240426
  Receipt Date: 20240529
  Transmission Date: 20240716
  Serious: No
  Sender: FDA-Public Use
  Company Number: US-PFIZER INC-202400093823

PATIENT
  Age: 76 Year
  Sex: Male

DRUGS (5)
  1. SOMATROPIN [Suspect]
     Active Substance: SOMATROPIN
     Dosage: INJECT 0.25 ML
     Route: 058
     Dates: start: 20230923
  2. CYTOMEL [Suspect]
     Active Substance: LIOTHYRONINE SODIUM
     Dosage: 5 UG, DAILY
     Route: 048
     Dates: start: 20231023
  3. SINEQUAN [Concomitant]
     Active Substance: DOXEPIN HYDROCHLORIDE
     Dosage: 30 MG, 1X/DAY (NIGHTLY)
     Route: 048
  4. LONITEN [Concomitant]
     Active Substance: MINOXIDIL
     Dosage: 5 MG, DAILY
  5. TESTOSTERONE [Concomitant]
     Active Substance: TESTOSTERONE
     Dosage: 150 MG, WEEKLY
     Route: 030

REACTIONS (1)
  - Prostatic specific antigen increased [Unknown]
